FAERS Safety Report 9185973 (Version 1)
Quarter: 2013Q1

REPORT INFORMATION
  Report Type: Spontaneous
  Country: US (occurrence: US)
  Receive Date: 20130325
  Receipt Date: 20130325
  Transmission Date: 20140127
  Serious: Yes (Other)
  Sender: FDA-Public Use
  Company Number: US-ASTRAZENECA-2013SE16898

PATIENT
  Age: 75 Year
  Sex: Female

DRUGS (5)
  1. BRILINTA [Suspect]
     Indication: ACUTE CORONARY SYNDROME
     Route: 048
  2. BRILINTA [Suspect]
     Indication: STENT PLACEMENT
     Route: 048
  3. ASPIRIN [Suspect]
     Indication: ACUTE CORONARY SYNDROME
  4. ASPIRIN [Suspect]
     Indication: STENT PLACEMENT
  5. OTHER MEDICATIONS [Suspect]

REACTIONS (2)
  - Dyspnoea [Unknown]
  - Drug intolerance [Unknown]
